FAERS Safety Report 6864660-8 (Version None)
Quarter: 2010Q3

REPORT INFORMATION
  Report Type: 
  Country: None (occurrence: None)
  Receive Date: 20100721
  Receipt Date: 20080517
  Transmission Date: 20110219
  Serious: Yes (Other)
  Sender: FDA-Public Use
  Company Number: US-PFIZER INC-2008028834

PATIENT
  Sex: Female
  Weight: 68.636 kg

DRUGS (7)
  1. CHANTIX [Suspect]
     Indication: SMOKING CESSATION THERAPY
     Route: 048
     Dates: start: 20080228
  2. ANTIGLAUCOMA PREPARATIONS AND MIOTICS [Concomitant]
  3. ACETYLSALICYLIC ACID [Concomitant]
  4. MULTI-VITAMINS [Concomitant]
  5. VITACAL [Concomitant]
  6. LIPITOR [Concomitant]
  7. IBANDRONATE SODIUM [Concomitant]

REACTIONS (1)
  - HOT FLUSH [None]
